FAERS Safety Report 5772173-X (Version None)
Quarter: 2008Q2

REPORT INFORMATION
  Report Type: 
  Country: None (occurrence: None)
  Receive Date: 20080613
  Receipt Date: 20080605
  Transmission Date: 20081010
  Serious: Yes (Other)
  Sender: FDA-Public Use
  Company Number: US-BAYER-200821681NA

PATIENT
  Age: 54 Year
  Sex: Male

DRUGS (1)
  1. MAGNEVIST [Suspect]
     Indication: NUCLEAR MAGNETIC RESONANCE IMAGING
     Dosage: TOTAL DAILY DOSE: 18 ML
     Dates: start: 20080430, end: 20080430

REACTIONS (4)
  - CHEST PAIN [None]
  - DIZZINESS [None]
  - SPEECH DISORDER [None]
  - SUFFOCATION FEELING [None]
